FAERS Safety Report 16689535 (Version 1)
Quarter: 2019Q3

REPORT INFORMATION
  Report Type: Spontaneous
  Country: US (occurrence: US)
  Receive Date: 20190809
  Receipt Date: 20190809
  Transmission Date: 20191004
  Serious: No
  Sender: FDA-Public Use
  Company Number: US-SA-2019SA213326

PATIENT
  Age: 21 Year
  Sex: Female

DRUGS (1)
  1. DUPIXENT [Suspect]
     Active Substance: DUPILUMAB
     Dosage: 300 MG, QOW
     Route: 058
     Dates: start: 201904

REACTIONS (5)
  - Skin discolouration [Unknown]
  - Arthropod bite [Unknown]
  - Injection site bruising [Unknown]
  - Inflammation [Unknown]
  - Urticaria [Unknown]

NARRATIVE: CASE EVENT DATE: 2019
